FAERS Safety Report 8452529-7 (Version None)
Quarter: 2012Q2

REPORT INFORMATION
  Report Type: 
  Country: None (occurrence: None)
  Receive Date: 20120620
  Receipt Date: 20120501
  Transmission Date: 20120825
  Serious: No
  Sender: FDA-Public Use
  Company Number: US-VERTEX PHARMACEUTICALS INC.-AE-2012-005390

PATIENT
  Sex: Female
  Weight: 88.53 kg

DRUGS (8)
  1. PEGASYS [Concomitant]
     Indication: HEPATITIS C
     Route: 058
     Dates: start: 20120406
  2. ATENOLOL [Concomitant]
     Indication: HYPERTENSION
  3. COZAAR [Concomitant]
     Indication: HYPERTENSION
  4. INCIVEK [Suspect]
     Indication: HEPATITIS C
     Route: 048
     Dates: start: 20120406
  5. GLYBURIDE [Concomitant]
     Indication: DIABETES MELLITUS
  6. METFORMIN HCL [Concomitant]
     Indication: DIABETES MELLITUS
     Route: 048
  7. RIBAVIRIN [Concomitant]
     Indication: HEPATITIS C
     Route: 048
     Dates: start: 20120406
  8. TRILIPIX [Concomitant]
     Indication: BLOOD TRIGLYCERIDES

REACTIONS (4)
  - NAUSEA [None]
  - ANAL PRURITUS [None]
  - CHROMATURIA [None]
  - DIARRHOEA [None]
